FAERS Safety Report 4603178-X (Version None)
Quarter: 2005Q1

REPORT INFORMATION
  Report Type: 
  Country: None (occurrence: None)
  Receive Date: 20050307
  Receipt Date: 20050222
  Transmission Date: 20050727
  Serious: Yes (Other)
  Sender: FDA-Public Use
  Company Number: 212781

PATIENT
  Age: 42 Year
  Sex: Female

DRUGS (6)
  1. HERCEPTIN [Suspect]
     Indication: BREAST CANCER METASTATIC
     Dosage: 4 MG/KG,SINGLE, INTRAVENOUS
     Route: 042
     Dates: start: 20050221, end: 20050221
  2. DOCETAXEL (DOCETAXEL) [Concomitant]
  3. PACLITAXEL [Concomitant]
  4. BRONCHODILATOR NOS (BRONCHODILATOR NOS) [Concomitant]
  5. CORTICOSTEROIDS (CORTICOSTEROIDS NOS) [Concomitant]
  6. RANITIDINE [Concomitant]

REACTIONS (1)
  - ANAPHYLACTIC REACTION [None]
